FAERS Safety Report 15129791 (Version 1)
Quarter: 2018Q3

REPORT INFORMATION
  Report Type: Spontaneous
  Country: US (occurrence: US)
  Receive Date: 20180711
  Receipt Date: 20180711
  Transmission Date: 20181010
  Serious: Yes (Other)
  Sender: FDA-Public Use
  Company Number: US-SA-2018SA173892

PATIENT
  Age: 62 Year
  Sex: Female

DRUGS (1)
  1. AMBIEN CR [Suspect]
     Active Substance: ZOLPIDEM TARTRATE
     Indication: SLEEP DISORDER
     Dosage: 12.5 MG
     Route: 065

REACTIONS (5)
  - Wrong technique in product usage process [Unknown]
  - Product taste abnormal [Unknown]
  - Drug dependence [Unknown]
  - Drug ineffective [Unknown]
  - Feeling abnormal [Unknown]
